FAERS Safety Report 9305284 (Version 1)
Quarter: 2013Q2

REPORT INFORMATION
  Report Type: Spontaneous
  Country: US (occurrence: None)
  Receive Date: 20130520
  Receipt Date: 20130520
  Transmission Date: 20140414
  Serious: Yes (Other)
  Sender: FDA-Public Use
  Company Number: 2013-01123

PATIENT
  Age: 62 Year
  Sex: Male
  Weight: 102.06 kg

DRUGS (6)
  1. VALSARTAN AND HYDROCHLOROTHIAZIDE TABLETS [Suspect]
     Indication: HYPERTENSION
     Route: 048
     Dates: start: 20130502, end: 20130503
  2. CLOPIDOGREL (PLAVIX) (UNKNOWN) [Concomitant]
  3. ACETYLSALICYLIC ACID [Concomitant]
  4. ALPRAZOLAM (TABLETS) [Concomitant]
  5. OMEPRAZOLE (UNKNOWN) [Concomitant]
  6. ZOLPIDEM (AMBIEN) ( UNKNOWN) [Concomitant]

REACTIONS (4)
  - Drug ineffective [None]
  - Blood pressure increased [None]
  - Product substitution issue [None]
  - Product quality issue [None]
